APPROVED DRUG PRODUCT: CIPRO XR
Active Ingredient: CIPROFLOXACIN; CIPROFLOXACIN HYDROCHLORIDE
Strength: 212.6MG;EQ 287.5MG BASE **Federal Register determination that product was not discontinued or withdrawn for safety or effectiveness reasons**
Dosage Form/Route: TABLET, EXTENDED RELEASE;ORAL
Application: N021473 | Product #001
Applicant: BAYER HEALTHCARE PHARMACEUTICALS INC
Approved: Dec 13, 2002 | RLD: No | RS: No | Type: DISCN